FAERS Safety Report 5772392-2 (Version None)
Quarter: 2008Q2

REPORT INFORMATION
  Report Type: 
  Country: None (occurrence: None)
  Receive Date: 20080613
  Receipt Date: 20080602
  Transmission Date: 20081010
  Serious: Yes (Hospitalization)
  Sender: FDA-Public Use
  Company Number: JP-ELI_LILLY_AND_COMPANY-JP200806002263

PATIENT
  Age: 71 Year
  Sex: Male
  Weight: 61 kg

DRUGS (7)
  1. HUMALOG [Suspect]
     Indication: TYPE 2 DIABETES MELLITUS
     Dosage: 36 IU, DAILY (1/D)
     Route: 058
     Dates: start: 20070629, end: 20070705
  2. HUMULIN N [Suspect]
     Indication: TYPE 2 DIABETES MELLITUS
     Dosage: 8 IU, DAILY (1/D)
     Route: 058
     Dates: start: 20070629, end: 20070714
  3. HUMULIN R [Suspect]
     Indication: TYPE 2 DIABETES MELLITUS
     Dosage: 12 IU, DAILY (1/D)
     Route: 058
     Dates: start: 20070705, end: 20070714
  4. NOVOLIN N [Concomitant]
     Dosage: 24 IU, DAILY (1/D)
     Route: 058
     Dates: start: 20070709
  5. PENFILL N [Concomitant]
  6. PENFILL R [Concomitant]
  7. NOVORAPID [Concomitant]

REACTIONS (3)
  - ANTI-INSULIN ANTIBODY POSITIVE [None]
  - HYPERGLYCAEMIA [None]
  - HYPOGLYCAEMIA [None]
